FAERS Safety Report 9443805 (Version 1)
Quarter: 2013Q3

REPORT INFORMATION
  Report Type: Report from Study
  Country: US (occurrence: US)
  Receive Date: 20130806
  Receipt Date: 20130806
  Transmission Date: 20140515
  Serious: Yes (Congenital Anomaly, Other)
  Sender: FDA-Public Use
  Company Number: US-TEVA-423646USA

PATIENT
  Age: 4 Month
  Sex: Male

DRUGS (2)
  1. CLONAZEPAM [Suspect]
     Indication: EPILEPSY
     Route: 064
     Dates: end: 20111030
  2. ZONISAMIDE [Suspect]
     Dosage: 200-300-400 INCREASED
     Route: 064
     Dates: start: 20111019, end: 20111026

REACTIONS (1)
  - Craniosynostosis [Recovered/Resolved]
